FAERS Safety Report 9232107 (Version 2)
Quarter: 2013Q2

REPORT INFORMATION
  Report Type: Spontaneous
  Country: US (occurrence: US)
  Receive Date: 20130415
  Receipt Date: 20130520
  Transmission Date: 20140414
  Serious: Yes (Other)
  Sender: FDA-Public Use
  Company Number: US-PFIZER INC-2013117024

PATIENT
  Age: 25 Year
  Sex: Male
  Weight: 77.1 kg

DRUGS (1)
  1. PHENYTOIN SODIUM [Suspect]
     Indication: CONVULSION
     Dosage: 400 MG (4 CAPSULES OF 100MG), UNK
     Route: 048
     Dates: start: 201111, end: 201112

REACTIONS (2)
  - Drug ineffective [Recovered/Resolved]
  - Blood test abnormal [Unknown]
